FAERS Safety Report 7157073-5 (Version None)
Quarter: 2010Q4

REPORT INFORMATION
  Report Type: 
  Country: None (occurrence: None)
  Receive Date: 20101214
  Receipt Date: 20091229
  Transmission Date: 20110411
  Serious: No
  Sender: FDA-Public Use
  Company Number: US-ASTRAZENECA-2009SE33870

PATIENT
  Age: 77 Year
  Sex: Male
  Weight: 96.2 kg

DRUGS (5)
  1. CRESTOR [Suspect]
     Indication: BLOOD CHOLESTEROL INCREASED
     Route: 048
     Dates: start: 20090501
  2. GLIPIZIDE [Concomitant]
  3. GABAPENTIN [Concomitant]
  4. FENOFIBRATE [Concomitant]
  5. RAMIPRIL [Concomitant]

REACTIONS (4)
  - COUGH [None]
  - HIP ARTHROPLASTY [None]
  - RHINORRHOEA [None]
  - WEIGHT INCREASED [None]
